FAERS Safety Report 23842431 (Version 1)
Quarter: 2024Q2

REPORT INFORMATION
  Report Type: Spontaneous
  Country: US (occurrence: None)
  Receive Date: 20240509
  Receipt Date: 20240509
  Transmission Date: 20240716
  Serious: Yes (Hospitalization)
  Sender: FDA-Public Use
  Company Number: None

PATIENT
  Sex: Female

DRUGS (3)
  1. REMICADE [Suspect]
     Active Substance: INFLIXIMAB
     Indication: Still^s disease
     Dosage: FREQUENCY : AS DIRECTED;?
     Route: 042
     Dates: start: 202404
  2. OTEZLA [Concomitant]
     Active Substance: APREMILAST
  3. RINVOQ [Concomitant]
     Active Substance: UPADACITINIB

REACTIONS (4)
  - Lymphadenopathy [None]
  - Pyrexia [None]
  - Rash [None]
  - General physical health deterioration [None]
